FAERS Safety Report 7406442-4 (Version None)
Quarter: 2011Q2

REPORT INFORMATION
  Report Type: 
  Country: None (occurrence: None)
  Receive Date: 20110411
  Receipt Date: 20110406
  Transmission Date: 20111010
  Serious: Yes (Death)
  Sender: FDA-Public Use
  Company Number: PHHY2011AT28701

PATIENT
  Age: 41 Year
  Sex: Male

DRUGS (1)
  1. TASIGNA [Suspect]
     Indication: CHRONIC MYELOID LEUKAEMIA
     Dosage: 800 MG, DAILY

REACTIONS (3)
  - GASTROINTESTINAL HAEMORRHAGE [None]
  - BLAST CRISIS IN MYELOGENOUS LEUKAEMIA [None]
  - DRUG RESISTANCE [None]
